FAERS Safety Report 7268059-4 (Version None)
Quarter: 2011Q1

REPORT INFORMATION
  Report Type: 
  Country: None (occurrence: None)
  Receive Date: 20110201
  Receipt Date: 20110119
  Transmission Date: 20110831
  Serious: Yes (Hospitalization)
  Sender: FDA-Public Use
  Company Number: IN-WATSON-2011-00756

PATIENT
  Age: 32 Year
  Sex: Male

DRUGS (3)
  1. DISULFIRAM [Suspect]
     Indication: ALCOHOLISM
     Dosage: 250 MG, DAILY
     Route: 065
  2. ALCOHOL                            /00002101/ [Suspect]
     Indication: ALCOHOLISM
     Dosage: UNK
  3. DISULFIRAM [Suspect]
     Dosage: 250 MG, BID
     Route: 065

REACTIONS (4)
  - VIITH NERVE PARALYSIS [None]
  - PARAESTHESIA [None]
  - VOCAL CORD PARALYSIS [None]
  - ALCOHOL INTOLERANCE [None]
